FAERS Safety Report 8816903 (Version 1)
Quarter: 2012Q4

REPORT INFORMATION
  Report Type: Spontaneous
  Country: US (occurrence: None)
  Receive Date: 20121002
  Receipt Date: 20121002
  Transmission Date: 20130627
  Serious: Yes (Other)
  Sender: FDA-Public Use
  Company Number: None

PATIENT
  Age: 78 Year
  Sex: Female
  Weight: 48.08 kg

DRUGS (6)
  1. PROLIA [Suspect]
     Indication: OSTEOPOROSIS
     Dates: start: 20120109, end: 20120109
  2. PROLIA [Suspect]
     Indication: OSTEOPOROSIS
     Dates: start: 20120709, end: 20120709
  3. ASPIRIN [Concomitant]
  4. CHOLECALCIFEROL [Concomitant]
  5. CALCIUM PLUS VITAMIN D [Concomitant]
  6. MULTIVITAMIN [Concomitant]

REACTIONS (2)
  - Myalgia [None]
  - Muscle spasms [None]
